FAERS Safety Report 7937401-0 (Version None)
Quarter: 2011Q4

REPORT INFORMATION
  Report Type: 
  Country: None (occurrence: None)
  Receive Date: 20111123
  Receipt Date: 20111118
  Transmission Date: 20120403
  Serious: Yes (Other)
  Sender: FDA-Public Use
  Company Number: JP-JNJFOC-20111109045

PATIENT
  Sex: Female

DRUGS (6)
  1. TIZANIDINE HCL [Concomitant]
     Route: 048
  2. NEUROTROPIN [Concomitant]
     Route: 048
  3. TAKA-DIASTASE [Concomitant]
     Route: 048
  4. TRAMADOL HYDROCHLORIDE/ACETAMINOPHEN [Suspect]
     Indication: PAIN
     Dosage: 1-2 TABLET/DAY
     Route: 048
  5. AN UNKNOWN MEDICATION [Concomitant]
     Route: 065
  6. NIZATIDINE [Concomitant]
     Route: 048

REACTIONS (3)
  - ALTERED STATE OF CONSCIOUSNESS [None]
  - NAUSEA [None]
  - DIZZINESS [None]
